FAERS Safety Report 4584992-6 (Version None)
Quarter: 2005Q1

REPORT INFORMATION
  Report Type: 
  Country: None (occurrence: None)
  Receive Date: 20050217
  Receipt Date: 20041201
  Transmission Date: 20050727
  Serious: No
  Sender: FDA-Public Use
  Company Number: US-GLAXOSMITHKLINE-A0535715A

PATIENT
  Sex: Female

DRUGS (3)
  1. WELLBUTRIN XL [Suspect]
     Indication: ILL-DEFINED DISORDER
     Dosage: 150MG PER DAY
     Route: 048
     Dates: start: 20041123
  2. FUROSEMIDE [Concomitant]
  3. ATENOLOL [Concomitant]

REACTIONS (3)
  - DRY MOUTH [None]
  - PALPITATIONS [None]
  - PARAESTHESIA [None]
